FAERS Safety Report 6376026-8 (Version None)
Quarter: 2009Q3

REPORT INFORMATION
  Report Type: 
  Country: None (occurrence: None)
  Receive Date: 20090924
  Receipt Date: 20090916
  Transmission Date: 20100115
  Serious: Yes (Hospitalization, Other)
  Sender: FDA-Public Use
  Company Number: PHHY2009JP36176

PATIENT
  Sex: Male
  Weight: 40 kg

DRUGS (4)
  1. TEGRETOL [Suspect]
     Indication: AGITATION
     Dosage: 800 MG, UNK
     Route: 048
     Dates: end: 20090820
  2. VEGETAMIN B [Suspect]
     Indication: AGITATION
     Dosage: 3 DF, UNK
     Route: 048
  3. DIGOSIN [Concomitant]
     Indication: CARDIAC FAILURE
     Dosage: 0.15 MG, UNK
     Route: 048
  4. LASIX [Concomitant]
     Indication: CARDIAC FAILURE
     Dosage: 20 MG, UNK
     Route: 048

REACTIONS (6)
  - BACTERIAL INFECTION [None]
  - C-REACTIVE PROTEIN INCREASED [None]
  - GAMMA-GLUTAMYLTRANSFERASE INCREASED [None]
  - LIVER DISORDER [None]
  - PYREXIA [None]
  - URTICARIA [None]
